FAERS Safety Report 5524128-8 (Version None)
Quarter: 2007Q4

REPORT INFORMATION
  Report Type: 
  Country: None (occurrence: None)
  Receive Date: 20071121
  Receipt Date: 20071112
  Transmission Date: 20080405
  Serious: Yes (Hospitalization, Other)
  Sender: FDA-Public Use
  Company Number: FR-MERCK-0710FRA00050

PATIENT
  Age: 35 Year

DRUGS (1)
  1. CANCIDAS [Suspect]
     Indication: PYREXIA
     Route: 042

REACTIONS (2)
  - BRONCHOPULMONARY ASPERGILLOSIS [None]
  - DRUG INEFFECTIVE [None]
